FAERS Safety Report 25153671 (Version 1)
Quarter: 2025Q2

REPORT INFORMATION
  Report Type: Spontaneous
  Country: FR (occurrence: FR)
  Receive Date: 20250403
  Receipt Date: 20250403
  Transmission Date: 20250716
  Serious: Yes (Life-Threatening)
  Sender: EMD SERONO INC
  Company Number: None

PATIENT
  Age: 29 Year
  Sex: Male
  Weight: 77 kg

DRUGS (4)
  1. METFORMIN [Suspect]
     Active Substance: METFORMIN HYDROCHLORIDE
     Indication: Poisoning deliberate
     Dates: start: 20250220, end: 20250220
  2. BISOPROLOL [Suspect]
     Active Substance: BISOPROLOL
     Indication: Poisoning deliberate
     Dates: start: 20250220, end: 20250220
  3. ENALAPRIL [Suspect]
     Active Substance: ENALAPRIL
     Indication: Poisoning deliberate
     Dates: start: 20250220, end: 20250220
  4. ACETAMINOPHEN [Suspect]
     Active Substance: ACETAMINOPHEN
     Indication: Poisoning deliberate
     Dates: start: 20250220, end: 20250220

REACTIONS (4)
  - Shock [Recovered/Resolved]
  - Acute kidney injury [Recovered/Resolved]
  - Poisoning deliberate [Recovered/Resolved]
  - Lactic acidosis [Recovered/Resolved]

NARRATIVE: CASE EVENT DATE: 20250220
